FAERS Safety Report 5837844-5 (Version None)
Quarter: 2008Q3

REPORT INFORMATION
  Report Type: 
  Country: None (occurrence: None)
  Receive Date: 20080808
  Receipt Date: 20071231
  Transmission Date: 20090109
  Serious: No
  Sender: FDA-Public Use
  Company Number: A0701477A

PATIENT
  Sex: Female

DRUGS (3)
  1. PAXIL CR [Suspect]
     Dosage: 12.5MG UNKNOWN
     Route: 048
  2. ADVAIR DISKUS 100/50 [Concomitant]
  3. BLOOD PRESSURE MEDICATION [Concomitant]

REACTIONS (2)
  - DYSPNOEA [None]
  - INSOMNIA [None]
